FAERS Safety Report 5059849-7 (Version None)
Quarter: 2006Q3

REPORT INFORMATION
  Report Type: 
  Country: None (occurrence: None)
  Receive Date: 20060718
  Receipt Date: 20060705
  Transmission Date: 20061208
  Serious: Yes (Other)
  Sender: FDA-Public Use
  Company Number: 200613154BWH

PATIENT
  Age: 45 Year
  Sex: Female
  Weight: 72.5755 kg

DRUGS (6)
  1. AVELOX [Suspect]
     Indication: EAR INFECTION
     Dosage: 400 MG QD ORAL
     Route: 048
     Dates: start: 20060309, end: 20060323
  2. AVELOX [Suspect]
     Indication: EAR INFECTION
     Dosage: 400 MG QD ORAL
     Route: 048
     Dates: start: 20060330, end: 20060405
  3. CIPRODEX (CIPROFLOXACIN DEXAMETHASONE) [Concomitant]
  4. FLOXIN OTIC (BENZALKONIUM CHLORIDE, OFLOXACIN SODIUM CHLORIDE, SODIUM [Concomitant]
  5. LOTRIMIN [Concomitant]
  6. METHYLPREDNISOLONE [Concomitant]

REACTIONS (4)
  - DRUG EXPOSURE DURING PREGNANCY [None]
  - DRUG INEFFECTIVE [None]
  - HAEMORRHOIDS [None]
  - INTRA-UTERINE DEATH [None]
